FAERS Safety Report 9175849 (Version 1)
Quarter: 2013Q1

REPORT INFORMATION
  Report Type: Spontaneous
  Country: DE (occurrence: DE)
  Receive Date: 20130320
  Receipt Date: 20130320
  Transmission Date: 20140127
  Serious: Yes (Other)
  Sender: FDA-Public Use
  Company Number: DE-BAXTER-2013BAX009521

PATIENT
  Age: 37 Year
  Sex: Male

DRUGS (6)
  1. ENDOXAN 1G [Suspect]
     Indication: GRANULOMATOSIS WITH POLYANGIITIS
     Route: 065
  2. AZATHIOPRINE [Concomitant]
     Indication: GRANULOMATOSIS WITH POLYANGIITIS
     Route: 065
  3. TRIMETHOPRIM/SULFAMETHOXAZOLE [Concomitant]
     Indication: GRANULOMATOSIS WITH POLYANGIITIS
     Route: 065
  4. MYCOPHENOLATE MOFETIL [Concomitant]
     Indication: GRANULOMATOSIS WITH POLYANGIITIS
     Route: 065
  5. IMMUNOGLOBULIN [Concomitant]
     Indication: GRANULOMATOSIS WITH POLYANGIITIS
     Route: 042
  6. METHOTREXATE [Concomitant]
     Indication: GRANULOMATOSIS WITH POLYANGIITIS
     Route: 065

REACTIONS (1)
  - Hepatotoxicity [Unknown]
